FAERS Safety Report 5482102-4 (Version None)
Quarter: 2007Q4

REPORT INFORMATION
  Report Type: 
  Country: None (occurrence: None)
  Receive Date: 20071011
  Receipt Date: 20071009
  Transmission Date: 20080405
  Serious: Yes (Death)
  Sender: FDA-Public Use
  Company Number: PHBS2007IE15260

PATIENT
  Age: 53 Year
  Sex: Male

DRUGS (2)
  1. EXFORGE [Suspect]
     Indication: HYPERTENSION
     Dosage: VALS 80 / AMLO 5 MG
     Route: 048
     Dates: start: 20070905
  2. NEOCLARITYN [Concomitant]
     Indication: PRURITUS
     Dosage: UNK, PRN
     Route: 048
     Dates: start: 20070905

REACTIONS (5)
  - ARRHYTHMIA [None]
  - CORONARY ARTERY DILATATION [None]
  - HEPATIC CONGESTION [None]
  - PULMONARY CONGESTION [None]
  - VENTRICULAR HYPERTROPHY [None]
